FAERS Safety Report 5224090-1 (Version None)
Quarter: 2007Q1

REPORT INFORMATION
  Report Type: 
  Country: None (occurrence: None)
  Receive Date: 20070130
  Receipt Date: 20070122
  Transmission Date: 20070707
  Serious: Yes (Other)
  Sender: FDA-Public Use
  Company Number: US-JNJFOC-20070105540

PATIENT
  Age: 55 Year
  Sex: Female
  Weight: 152.41 kg

DRUGS (12)
  1. REMICADE [Suspect]
     Indication: CROHN'S DISEASE
     Route: 042
  2. WARFARIN SODIUM [Concomitant]
  3. TOPROL-XL [Concomitant]
  4. 6-MP [Concomitant]
  5. PREVACID [Concomitant]
  6. POTASSIUM CHLORIDE [Concomitant]
  7. AVALIDE [Concomitant]
     Indication: HYPERTENSION
  8. DYAZIDE [Concomitant]
  9. SYNTHROID [Concomitant]
  10. PENTASA [Concomitant]
  11. VITAMIN B COMPLEX CAP [Concomitant]
  12. FLAGYL [Concomitant]

REACTIONS (3)
  - BURNING SENSATION [None]
  - PAIN IN EXTREMITY [None]
  - SKIN DISORDER [None]
